FAERS Safety Report 14969872 (Version 1)
Quarter: 2018Q2

REPORT INFORMATION
  Report Type: Spontaneous
  Country: US (occurrence: US)
  Receive Date: 20180604
  Receipt Date: 20180604
  Transmission Date: 20180711
  Serious: No
  Sender: FDA-Public Use
  Company Number: US-MYLANLABS-2018M1024882

PATIENT
  Sex: Female

DRUGS (3)
  1. SIMVASTATIN ACO [Concomitant]
     Indication: HYPERCHOLESTEROLAEMIA
     Dosage: 1 DF, QD
     Route: 048
  2. LORAZEPAM AHN [Concomitant]
     Indication: ANXIETY
     Dosage: 1 DF, BID
     Route: 048
  3. ATENOLOL. [Suspect]
     Active Substance: ATENOLOL
     Indication: HYPERTENSION
     Dosage: 25 MG, QD
     Route: 048
     Dates: start: 2015

REACTIONS (1)
  - Gastric disorder [Unknown]
